FAERS Safety Report 5505001-8 (Version None)
Quarter: 2007Q4

REPORT INFORMATION
  Report Type: 
  Country: None (occurrence: None)
  Receive Date: 20071031
  Receipt Date: 20071015
  Transmission Date: 20080405
  Serious: Yes (Hospitalization)
  Sender: FDA-Public Use
  Company Number: DSA_61780_2007

PATIENT
  Sex: Female
  Weight: 58.514 kg

DRUGS (1)
  1. MIGRANAL [Suspect]
     Indication: MIGRAINE
     Dosage: (2 DF 2 SQUIRTS/ NOSTRIL NASAL)
     Route: 045
     Dates: start: 20070928

REACTIONS (7)
  - CONFUSIONAL STATE [None]
  - DEHYDRATION [None]
  - DIZZINESS [None]
  - NAUSEA [None]
  - REFUSAL OF TREATMENT BY PATIENT [None]
  - TREATMENT NONCOMPLIANCE [None]
  - VOMITING [None]
